FAERS Safety Report 4340401-3 (Version None)
Quarter: 2004Q2

REPORT INFORMATION
  Report Type: 
  Country: None (occurrence: None)
  Receive Date: 20040414
  Receipt Date: 20040401
  Transmission Date: 20050107
  Serious: Yes (Hospitalization)
  Sender: FDA-Public Use
  Company Number: 2003122916

PATIENT
  Age: 57 Year
  Sex: Male
  Weight: 60 kg

DRUGS (18)
  1. VFEND [Suspect]
     Indication: FEBRILE NEUTROPENIA
     Dosage: 250 MG (EVERY 12 HOURS), INTRAVENOUS
     Route: 042
     Dates: start: 20031003, end: 20031007
  2. VFEND [Suspect]
     Indication: FUNGAL INFECTION
     Dosage: 250 MG (EVERY 12 HOURS), INTRAVENOUS
     Route: 042
     Dates: start: 20031003, end: 20031007
  3. VFEND [Suspect]
     Indication: PNEUMONIA FUNGAL
     Dosage: 250 MG (EVERY 12 HOURS), INTRAVENOUS
     Route: 042
     Dates: start: 20031003, end: 20031007
  4. LINEZOLID (LINEZOLID) [Concomitant]
  5. LEVOFLOXACIN [Concomitant]
  6. ACYCLOVIR [Concomitant]
  7. CASPOFUNGIN (CASPOFUNGIN) [Concomitant]
  8. CEFEPIME (CEFEPIME) [Concomitant]
  9. SARGRAMOSTIM (SARGRAMOSTIM) [Concomitant]
  10. ACETAMINOPHEN [Concomitant]
  11. FILGRASTIM (FILGRASTIM) [Concomitant]
  12. PANTOPRAZOLE (PANTOPRAZOLE) [Concomitant]
  13. FERROUS SULFATE TAB [Concomitant]
  14. EPOETIN ALFA (EPOETIN ALFA) [Concomitant]
  15. ALLOPURINOL [Concomitant]
  16. VANCOMYCIN [Concomitant]
  17. METRONIDAZOLE [Concomitant]
  18. LEVOFLOXACIN [Concomitant]

REACTIONS (4)
  - FALL [None]
  - HALLUCINATION [None]
  - PAIN [None]
  - PYREXIA [None]
